FAERS Safety Report 15210217 (Version 5)
Quarter: 2018Q4

REPORT INFORMATION
  Report Type: Report from Study
  Country: US (occurrence: US)
  Receive Date: 20180727
  Receipt Date: 20181123
  Transmission Date: 20190204
  Serious: No
  Sender: FDA-Public Use
  Company Number: PHEH2018US030370

PATIENT
  Sex: Male

DRUGS (2)
  1. COSENTYX [Suspect]
     Active Substance: SECUKINUMAB
     Indication: PSORIATIC ARTHROPATHY
     Dosage: 300 MG, QMO
     Route: 058
  2. COSENTYX [Suspect]
     Active Substance: SECUKINUMAB
     Dosage: 150 MG, Q2W
     Route: 058

REACTIONS (12)
  - Feeling abnormal [Unknown]
  - Back pain [Unknown]
  - Influenza [Recovering/Resolving]
  - Inflammation [Unknown]
  - Arthralgia [Unknown]
  - Pain [Unknown]
  - Cognitive disorder [Unknown]
  - Arthritis [Unknown]
  - Inappropriate schedule of product administration [Unknown]
  - Nasopharyngitis [Unknown]
  - Pain in extremity [Unknown]
  - Tendonitis [Unknown]
